FAERS Safety Report 19979093 (Version 10)
Quarter: 2022Q3

REPORT INFORMATION
  Report Type: Report from Study
  Country: US (occurrence: US)
  Receive Date: 20211021
  Receipt Date: 20220707
  Transmission Date: 20221026
  Serious: Yes (Hospitalization, Other)
  Sender: FDA-Public Use
  Company Number: US-ALNYLAM PHARMACEUTICALS, INC.-ALN-2021-002605

PATIENT

DRUGS (3)
  1. ONPATTRO [Suspect]
     Active Substance: PATISIRAN SODIUM
     Indication: Hereditary neuropathic amyloidosis
     Dosage: 15.7 MILLIGRAM, Q3W
     Route: 042
     Dates: start: 20201029
  2. PREDNISONE [Concomitant]
     Active Substance: PREDNISONE
     Indication: Product used for unknown indication
     Dosage: 10 MILLIGRAM
     Route: 065
  3. PREDNISONE [Concomitant]
     Active Substance: PREDNISONE
     Dosage: 15 MILLIGRAM
     Route: 065

REACTIONS (26)
  - Renal failure [Not Recovered/Not Resolved]
  - Blindness transient [Unknown]
  - Cardiac failure [Unknown]
  - Neuralgia [Not Recovered/Not Resolved]
  - Chills [Recovering/Resolving]
  - Tremor [Recovering/Resolving]
  - Gait inability [Recovering/Resolving]
  - Insomnia [Recovering/Resolving]
  - Sciatica [Not Recovered/Not Resolved]
  - Back pain [Not Recovered/Not Resolved]
  - Fluid retention [Unknown]
  - Fall [Unknown]
  - Neuropathy peripheral [Not Recovered/Not Resolved]
  - Weight gain poor [Unknown]
  - Poor quality sleep [Unknown]
  - Limb discomfort [Not Recovered/Not Resolved]
  - Mood altered [Unknown]
  - Swelling face [Unknown]
  - Eye pruritus [Unknown]
  - Fatigue [Unknown]
  - Dysphagia [Unknown]
  - Muscle spasms [Unknown]
  - Retinal artery occlusion [Unknown]
  - Vitamin A deficiency [Unknown]
  - Cardiac operation [Unknown]
  - Therapeutic response shortened [Unknown]

NARRATIVE: CASE EVENT DATE: 20210101
